FAERS Safety Report 17984661 (Version 5)
Quarter: 2020Q3

REPORT INFORMATION
  Report Type: Report from Study
  Country: US (occurrence: US)
  Receive Date: 20200706
  Receipt Date: 20200803
  Transmission Date: 20201103
  Serious: Yes (Hospitalization, Other)
  Sender: FDA-Public Use
  Company Number: US-SA-2020SA171842

PATIENT

DRUGS (3)
  1. CAPLACIZUMAB?YHDP [Suspect]
     Active Substance: CAPLACIZUMAB-YHDP
     Indication: THROMBOTIC MICROANGIOPATHY
     Dosage: 11 MG, QD
     Route: 058
     Dates: start: 20200424
  2. CAPLACIZUMAB?YHDP [Suspect]
     Active Substance: CAPLACIZUMAB-YHDP
     Dosage: 11 MG, PRN
     Route: 030
  3. LITHIUM. [Suspect]
     Active Substance: LITHIUM
     Route: 065

REACTIONS (15)
  - Pseudomonal bacteraemia [Recovered/Resolved]
  - Hypernatraemia [Unknown]
  - Lung opacity [Unknown]
  - Blood glucose fluctuation [Unknown]
  - Nephrogenic diabetes insipidus [Unknown]
  - Speech disorder [Unknown]
  - Incorrect route of product administration [Unknown]
  - Fungal skin infection [Unknown]
  - Product use issue [Unknown]
  - Pneumonia [Recovered/Resolved]
  - Dysphagia [Unknown]
  - Disturbance in attention [Unknown]
  - Fall [Unknown]
  - Agitation [Unknown]
  - ADAMTS13 activity decreased [Unknown]

NARRATIVE: CASE EVENT DATE: 20200628
